FAERS Safety Report 4817931-0 (Version None)
Quarter: 2005Q4

REPORT INFORMATION
  Report Type: 
  Country: None (occurrence: None)
  Receive Date: 20051102
  Receipt Date: 20051004
  Transmission Date: 20060501
  Serious: Yes (Hospitalization)
  Sender: FDA-Public Use
  Company Number: 2005UW14886

PATIENT
  Age: 76 Year
  Sex: Male
  Weight: 63.2 kg

DRUGS (4)
  1. SEROQUEL [Suspect]
     Indication: TREMOR
     Route: 048
     Dates: end: 20050609
  2. SEROQUEL [Suspect]
     Indication: HALLUCINATION
     Route: 048
     Dates: end: 20050609
  3. MIRAPEX [Concomitant]
     Indication: MUSCLE SPASMS
     Dates: end: 20050610
  4. COGENTIN [Concomitant]
     Indication: PARKINSON'S DISEASE
     Dates: end: 20050610

REACTIONS (6)
  - DYSPHAGIA [None]
  - HYPERTHERMIA MALIGNANT [None]
  - PNEUMONIA ASPIRATION [None]
  - PULMONARY OEDEMA [None]
  - SKIN LACERATION [None]
  - URINARY RETENTION [None]
